FAERS Safety Report 25713306 (Version 1)
Quarter: 2025Q3

REPORT INFORMATION
  Report Type: Report from Study
  Country: CO (occurrence: CO)
  Receive Date: 20250822
  Receipt Date: 20250822
  Transmission Date: 20251021
  Serious: Yes (Other)
  Sender: AMGEN
  Company Number: CO-AMGEN-COLSL2025139230

PATIENT
  Age: 73 Year
  Sex: Female

DRUGS (1)
  1. PROLIA [Suspect]
     Active Substance: DENOSUMAB
     Indication: Osteoporosis postmenopausal
     Dosage: 60 MILLIGRAM, Q6MO
     Route: 058
     Dates: start: 20240110, end: 20250109

REACTIONS (5)
  - Oral cavity fistula [Not Recovered/Not Resolved]
  - Tooth extraction [Recovered/Resolved]
  - Postoperative wound infection [Not Recovered/Not Resolved]
  - Gastritis [Not Recovered/Not Resolved]
  - Impaired healing [Not Recovered/Not Resolved]
